FAERS Safety Report 25770289 (Version 1)
Quarter: 2025Q3

REPORT INFORMATION
  Report Type: Spontaneous
  Country: GB (occurrence: GB)
  Receive Date: 20250907
  Receipt Date: 20250907
  Transmission Date: 20251020
  Serious: Yes (Disabling)
  Sender: CELLTRION
  Company Number: GB-CELLTRION INC.-2025GB027055

PATIENT

DRUGS (2)
  1. YUFLYMA [Suspect]
     Active Substance: ADALIMUMAB-AATY
     Indication: Rheumatoid arthritis
     Dosage: 40MG 1 INJECTION EVERY 2 WEEKS
     Route: 058
     Dates: start: 20250805
  2. YUFLYMA [Suspect]
     Active Substance: ADALIMUMAB-AATY
     Route: 058
     Dates: start: 20250805

REACTIONS (5)
  - Condition aggravated [Not Recovered/Not Resolved]
  - Fall [Not Recovered/Not Resolved]
  - Grip strength decreased [Not Recovered/Not Resolved]
  - Wrong technique in product usage process [Recovered/Resolved]
  - Incorrect dose administered by device [Recovered/Resolved]

NARRATIVE: CASE EVENT DATE: 20250805
